FAERS Safety Report 8616881-1 (Version None)
Quarter: 2012Q3

REPORT INFORMATION
  Report Type: 
  Country: None (occurrence: None)
  Receive Date: 20120823
  Receipt Date: 20120810
  Transmission Date: 20120928
  Serious: Yes (Hospitalization, Disabling, Other)
  Sender: FDA-Public Use
  Company Number: US-009507513-2009SP031151

PATIENT

DRUGS (5)
  1. ZYRTEC [Concomitant]
  2. NUVARING [Suspect]
     Indication: CONTRACEPTION
     Dates: start: 20080401, end: 20090501
  3. EFFEXOR [Concomitant]
  4. IRON (UNSPECIFIED) [Concomitant]
  5. NUVARING [Suspect]
     Indication: MENSTRUATION IRREGULAR

REACTIONS (9)
  - PULMONARY HYPERTENSION [None]
  - PULMONARY EMBOLISM [None]
  - ARRHYTHMIA SUPRAVENTRICULAR [None]
  - ARRHYTHMIA [None]
  - PAIN IN EXTREMITY [None]
  - BREAST CALCIFICATIONS [None]
  - AORTIC VALVE SCLEROSIS [None]
  - PALPITATIONS [None]
  - HYPERTENSION [None]
